FAERS Safety Report 12060449 (Version 1)
Quarter: 2016Q1

REPORT INFORMATION
  Report Type: Report from Study
  Country: JP (occurrence: JP)
  Receive Date: 20160210
  Receipt Date: 20160210
  Transmission Date: 20160526
  Serious: Yes (Other)
  Sender: FDA-Public Use
  Company Number: PHJP2009JP003903

PATIENT
  Age: 81 Year
  Sex: Male

DRUGS (1)
  1. BLINDED ZOLEDRONATE [Suspect]
     Active Substance: ZOLEDRONATE DISODIUM
     Indication: PRODUCT USED FOR UNKNOWN INDICATION
     Route: 065

REACTIONS (1)
  - Blood albumin decreased [Unknown]

NARRATIVE: CASE EVENT DATE: 20060821
